FAERS Safety Report 9727957 (Version 2)
Quarter: 2014Q1

REPORT INFORMATION
  Report Type: Spontaneous
  Country: CA (occurrence: CA)
  Receive Date: 20131204
  Receipt Date: 20140319
  Transmission Date: 20141002
  Serious: Yes (Death, Hospitalization, Other)
  Sender: FDA-Public Use
  Company Number: CA-AMGEN-CANSP2013084280

PATIENT
  Age: 61 Year
  Sex: Female
  Weight: 29 kg

DRUGS (12)
  1. PROLIA [Suspect]
     Indication: OSTEOPOROSIS POSTMENOPAUSAL
     Dosage: 60 MG, Q6MO
     Route: 058
     Dates: start: 20121206
  2. AMLODIPINE [Concomitant]
     Dosage: 5 MG, QD
  3. CALCIUM [Concomitant]
     Dosage: 500 MG, QD
  4. VITAMIN D                          /00107901/ [Concomitant]
     Dosage: 1000 UNIT, QD
  5. MULTIVITAMIN                       /00097801/ [Concomitant]
  6. KCL [Concomitant]
     Dosage: 16 MMOL, BID
     Route: 048
  7. COLACE [Concomitant]
     Dosage: 100 MG, BID
     Route: 048
  8. DOMPERIDONE [Concomitant]
     Dosage: 10 MG, UNK
     Route: 048
  9. LOVENOX [Concomitant]
     Dosage: 30 MG, QD
     Route: 058
  10. FERROUS FUMARATE [Concomitant]
     Dosage: 300 MG, QD
     Route: 048
  11. SENOKOT                            /00142201/ [Concomitant]
     Dosage: UNK UNK, QHS
     Route: 048
  12. THIAMINE [Concomitant]
     Dosage: 100 MG, QD
     Route: 048

REACTIONS (22)
  - Hypoglycaemia [Unknown]
  - Tachycardia [Not Recovered/Not Resolved]
  - Pneumonia [Recovering/Resolving]
  - Respiratory tract haemorrhage [Unknown]
  - Unresponsive to stimuli [Unknown]
  - Hypovolaemia [Unknown]
  - Hypertension [Fatal]
  - General physical health deterioration [Unknown]
  - Cardiac arrest [Fatal]
  - Anorexia nervosa [Fatal]
  - Myocardial infarction [Fatal]
  - Bradycardia [Fatal]
  - Respiratory distress [Fatal]
  - Hypotension [Fatal]
  - Asthenia [Not Recovered/Not Resolved]
  - Upper respiratory tract infection [Unknown]
  - Pain [Unknown]
  - Dizziness [Unknown]
  - Transaminases increased [Unknown]
  - Epistaxis [Unknown]
  - Anaemia [Not Recovered/Not Resolved]
  - Malaise [Unknown]
